FAERS Safety Report 4970312-1 (Version None)
Quarter: 2006Q2

REPORT INFORMATION
  Report Type: 
  Country: None (occurrence: None)
  Receive Date: 20060412
  Receipt Date: 20060407
  Transmission Date: 20061013
  Serious: Yes (Life-Threatening)
  Sender: FDA-Public Use
  Company Number: 2006SE02036

PATIENT
  Age: 78 Year
  Sex: Male

DRUGS (10)
  1. PROPOFOL [Suspect]
     Indication: SEDATION
     Dosage: 10 MG/ML
     Route: 042
     Dates: start: 20060320, end: 20060324
  2. METRONIDAZOLE [Concomitant]
  3. DIURAL [Concomitant]
     Dosage: MG/ML
  4. MAGNESIUMSULFAT BRAUN [Concomitant]
  5. PENTREXYL [Concomitant]
  6. AFIPRAN [Concomitant]
  7. ACTRAPID [Concomitant]
     Route: 041
  8. NEBCINA [Concomitant]
  9. SOMAC [Concomitant]
  10. LAKTULOSE [Concomitant]

REACTIONS (3)
  - BRADYCARDIA [None]
  - TORSADE DE POINTES [None]
  - VENTRICULAR TACHYCARDIA [None]
